FAERS Safety Report 15675448 (Version 2)
Quarter: 2020Q2

REPORT INFORMATION
  Report Type: Report from Study
  Country: KR (occurrence: KR)
  Receive Date: 20181130
  Receipt Date: 20200515
  Transmission Date: 20200713
  Serious: Yes (Hospitalization, Other)
  Sender: FDA-Public Use
  Company Number: KR-GLAXOSMITHKLINE-KR2018GSK211372

PATIENT
  Age: 72 Year
  Sex: Male
  Weight: 40 kg

DRUGS (39)
  1. SINGULAIR [Concomitant]
     Active Substance: MONTELUKAST SODIUM
     Dosage: 10 MG, SINGLE
     Route: 048
     Dates: start: 20180623, end: 20180623
  2. SYNATURA [Concomitant]
     Dosage: 15 ML, BID
     Route: 048
     Dates: start: 20171002
  3. LEFOCIN [Concomitant]
     Dosage: 500 MG, SINGLE
     Route: 042
     Dates: start: 20180618, end: 20180618
  4. METHYSOL [Concomitant]
     Dosage: 6.25 MG, SINGLE
     Dates: start: 20180618, end: 20180618
  5. GASMOTIN [Concomitant]
     Active Substance: MOSAPRIDE CITRATE
     Dosage: 5 MG, TID
     Route: 048
     Dates: start: 20180623, end: 20180623
  6. ZIPAN [Concomitant]
     Active Substance: PROMETHAZINE HYDROCHLORIDE
     Dosage: 50 MG, BID
     Dates: start: 20180703, end: 20180703
  7. LEXAPRO [Concomitant]
     Active Substance: ESCITALOPRAM OXALATE
     Dosage: 5 MG, SINGLE
     Route: 048
     Dates: start: 20180716, end: 20180722
  8. VENTOLIN NEBULE [Concomitant]
     Dosage: 2.5 MG, TID
     Route: 048
     Dates: start: 20180712, end: 20180712
  9. DIABEX [Concomitant]
     Active Substance: METFORMIN HYDROCHLORIDE
     Dosage: 500 MG, BID
     Route: 048
     Dates: end: 20180704
  10. PROAMIN 10% [Concomitant]
     Dosage: 500 ML, SINGLE
     Route: 042
     Dates: start: 20180720, end: 20180720
  11. SPIRIVA [Concomitant]
     Active Substance: TIOTROPIUM BROMIDE MONOHYDRATE
     Dosage: 18  MCG, SINGLE
     Route: 048
     Dates: start: 20060306, end: 20180617
  12. SPIRIVA [Concomitant]
     Active Substance: TIOTROPIUM BROMIDE MONOHYDRATE
     Dosage: 18 MCG, SINGLE
     Route: 048
     Dates: start: 20180629
  13. ASIMA [Concomitant]
     Active Substance: DOXOFYLLINE
     Dosage: 400 MG, SINGLE
     Route: 048
     Dates: start: 20160119
  14. ATROVENT UDVS [Concomitant]
     Dosage: 500 MCG, TID
     Route: 048
     Dates: start: 20180712, end: 20180712
  15. SINGULAIR [Concomitant]
     Active Substance: MONTELUKAST SODIUM
     Dosage: 10 MG, SINGLE
     Route: 048
     Dates: start: 20180625, end: 20180625
  16. LEVOXACIN [Concomitant]
     Active Substance: LEVOFLOXACIN
     Dosage: 500 MG, SINGLE
     Route: 048
     Dates: start: 20180703, end: 20180716
  17. BUSPAN [Concomitant]
     Dosage: 5 MG, TID
     Route: 048
     Dates: start: 20180714
  18. CURAN [Concomitant]
     Active Substance: RANITIDINE HYDROCHLORIDE
     Dosage: 50 MG, SINGLE
     Dates: start: 20180720, end: 20180720
  19. DEPAS (NOS) [Concomitant]
     Dosage: 0.5 MG, SINGLE
     Route: 048
     Dates: start: 20180720, end: 20180720
  20. LAMINA-G [Concomitant]
     Dosage: 20 ML, TID
     Route: 048
     Dates: start: 20180720
  21. ATROVENT UDVS [Concomitant]
     Dosage: 500 MCG, TID
     Route: 048
     Dates: start: 20180618, end: 20180618
  22. PANTOLOC [Concomitant]
     Active Substance: PANTOPRAZOLE SODIUM
     Dosage: 40 MG, SINGLE
     Route: 048
     Dates: start: 20180621, end: 20180621
  23. LIDOCAINE VISCOUS [Concomitant]
     Active Substance: LIDOCAINE HYDROCHLORIDE
     Dosage: 15 ML, SINGLE
     Route: 048
     Dates: start: 20180720, end: 20180720
  24. FLUTICASONE FUROATE + VILANTEROL TRIFENATATE [Suspect]
     Active Substance: FLUTICASONE FUROATE\VILANTEROL TRIFENATATE
     Indication: CHRONIC OBSTRUCTIVE PULMONARY DISEASE
     Dosage: 100/25 MCG, SINGLE
     Route: 055
     Dates: start: 20180528, end: 20180617
  25. FLUTICASONE FUROATE + VILANTEROL TRIFENATATE [Suspect]
     Active Substance: FLUTICASONE FUROATE\VILANTEROL TRIFENATATE
     Dosage: 100/ 25 MCG, SINGLE
     Route: 055
     Dates: start: 20180629, end: 20180905
  26. VENTOLIN NEBULE [Concomitant]
     Dosage: 1.25 MG, BID
     Route: 048
     Dates: start: 20180713, end: 20180827
  27. SINGULAIR [Concomitant]
     Active Substance: MONTELUKAST SODIUM
     Dosage: 10 MG, SINGLE
     Route: 048
     Dates: start: 20180628, end: 20180831
  28. ERDOS [Concomitant]
     Active Substance: ERDOSTEINE
     Dosage: 300 MG, BID
     Route: 048
     Dates: start: 20171002
  29. TWYNSTA [Concomitant]
     Active Substance: AMLODIPINE BESYLATE\TELMISARTAN
     Dosage: 40MG +50 MG, SINGLE
     Route: 048
     Dates: end: 20180617
  30. MIRTAX (CYCLOBENZAPRINE HYDROCHLORIDE) [Concomitant]
     Dosage: 3.75 MG, SINGLE
     Route: 048
     Dates: start: 20180723, end: 20180723
  31. VENTOLIN NEBULE [Concomitant]
     Dosage: 2.5 MG, TID
     Route: 048
     Dates: start: 20180618, end: 20180618
  32. VENTOLIN NEBULE [Concomitant]
     Dosage: 1.25 MG, BID
     Route: 048
     Dates: start: 20180630, end: 20180710
  33. TABACTAM [Concomitant]
     Active Substance: PIPERACILLIN SODIUM\TAZOBACTAM SODIUM
     Dosage: 4.5 G, TID
     Route: 042
     Dates: start: 20180618, end: 20180623
  34. BEARSE [Concomitant]
     Active Substance: DIMETHICONE\PANCRELIPASE\URSODIOL
     Dosage: 1 TAB, SINGLE
     Route: 048
     Dates: start: 20180710, end: 20180710
  35. ALMAGEL F [Concomitant]
     Dosage: 3 G, SINGLE
     Route: 048
     Dates: start: 20180720, end: 20180720
  36. SUSPEN ER [Concomitant]
     Dosage: 650 MG, BID
     Route: 048
     Dates: start: 20180528, end: 20180630
  37. LANSTON [Concomitant]
     Active Substance: LANSOPRAZOLE
     Dosage: 15 MG, BID
     Route: 048
     Dates: start: 20180623, end: 20180623
  38. GASTER [Concomitant]
     Active Substance: FAMOTIDINE
     Dosage: 20 MG, BID
     Route: 048
     Dates: start: 20180214, end: 20180829
  39. NEXIUM [Concomitant]
     Active Substance: ESOMEPRAZOLE MAGNESIUM
     Dosage: 40 MG, SINGLE
     Route: 042
     Dates: start: 20180721, end: 20180723

REACTIONS (1)
  - Cerebral infarction [Recovered/Resolved]

NARRATIVE: CASE EVENT DATE: 20180816
